FAERS Safety Report 7379511-5 (Version None)
Quarter: 2011Q1

REPORT INFORMATION
  Report Type: 
  Country: None (occurrence: None)
  Receive Date: 20110329
  Receipt Date: 20110321
  Transmission Date: 20110831
  Serious: No
  Sender: FDA-Public Use
  Company Number: US-BIOGENIDEC-2011BI011179

PATIENT
  Age: 66 Year
  Sex: Female

DRUGS (3)
  1. AVONEX [Concomitant]
     Indication: MULTIPLE SCLEROSIS
     Route: 030
     Dates: start: 20080301
  2. TYSABRI [Suspect]
     Indication: MULTIPLE SCLEROSIS
     Route: 042
     Dates: start: 20070307
  3. AMPYRA [Concomitant]

REACTIONS (2)
  - MOBILITY DECREASED [None]
  - BALANCE DISORDER [None]
